FAERS Safety Report 24698358 (Version 1)
Quarter: 2024Q4

REPORT INFORMATION
  Report Type: Spontaneous
  Country: US (occurrence: US)
  Receive Date: 20241204
  Receipt Date: 20241204
  Transmission Date: 20250114
  Serious: No
  Sender: PRIMUS PHARMACEUTICALS
  Company Number: US-PRIMUS-2024-US-033997

PATIENT
  Age: 77 Year
  Sex: Male

DRUGS (12)
  1. IMPOYZ [Suspect]
     Active Substance: CLOBETASOL PROPIONATE
     Indication: Product used for unknown indication
     Dosage: APPLY A THIN LAYER TOPICALLY TO THE AFFECTED LEGS 1 TO 2 TIMES DAILY AS NEEDED FOR STINGING AND INFL
     Route: 061
  2. TAMSULOSIN [Concomitant]
     Active Substance: TAMSULOSIN
  3. SILDENAFIL [Concomitant]
     Active Substance: SILDENAFIL
  4. GABAPENTIN [Concomitant]
     Active Substance: GABAPENTIN
  5. METOPROLOL SUCCINATE [Concomitant]
     Active Substance: METOPROLOL SUCCINATE
  6. PRAVASTATIN [Concomitant]
     Active Substance: PRAVASTATIN
  7. OMEPRAZOLE [Concomitant]
     Active Substance: OMEPRAZOLE
  8. NASACORT [Concomitant]
     Active Substance: TRIAMCINOLONE ACETONIDE
  9. SOLIFENACIN [Concomitant]
     Active Substance: SOLIFENACIN
  10. VOLTAREN [Concomitant]
     Active Substance: DICLOFENAC SODIUM
  11. ELETRIPTAN [Concomitant]
     Active Substance: ELETRIPTAN
  12. TIZANIDINE [Concomitant]
     Active Substance: TIZANIDINE

REACTIONS (1)
  - Drug ineffective [Not Recovered/Not Resolved]
